FAERS Safety Report 15198385 (Version 2)
Quarter: 2018Q3

REPORT INFORMATION
  Report Type: Spontaneous
  Country: US (occurrence: US)
  Receive Date: 20180725
  Receipt Date: 20180816
  Transmission Date: 20181010
  Serious: Yes (Hospitalization)
  Sender: FDA-Public Use
  Company Number: US-VIFOR (INTERNATIONAL) INC.-VIT-2018-07240

PATIENT
  Sex: Male

DRUGS (12)
  1. IRON [Concomitant]
     Active Substance: IRON
  2. PYRIDOXINE HYDROCHLORIDE~~BIOTIN~~FOLIC ACID~~CYANOCOBALAMIN~~RIBOFLAVIN~~CHOLINE BITARTRATE~~INOSIT [Concomitant]
  3. NOVOLOG [Concomitant]
     Active Substance: INSULIN ASPART
  4. SODIUM BICARBONATE. [Concomitant]
     Active Substance: SODIUM BICARBONATE
  5. MEROPENEM. [Concomitant]
     Active Substance: MEROPENEM
  6. ASCORBIC ACID. [Concomitant]
     Active Substance: ASCORBIC ACID
  7. ZANTAC 75 [Concomitant]
     Active Substance: RANITIDINE HYDROCHLORIDE
  8. VACCINIUM MACROCARPON [Concomitant]
     Active Substance: CRANBERRY
  9. HYSEPT [Concomitant]
     Active Substance: SODIUM HYPOCHLORITE
  10. LEVEMIR [Concomitant]
     Active Substance: INSULIN DETEMIR
  11. VELTASSA [Suspect]
     Active Substance: PATIROMER
     Indication: HYPERKALAEMIA
  12. ZINC ACETATE [Concomitant]
     Active Substance: ZINC ACETATE

REACTIONS (3)
  - Treatment noncompliance [Unknown]
  - Wound haemorrhage [Unknown]
  - Chronic kidney disease [Unknown]
